FAERS Safety Report 9531367 (Version 2)
Quarter: 2013Q3

REPORT INFORMATION
  Report Type: Report from Study
  Country: CA (occurrence: CA)
  Receive Date: 20130918
  Receipt Date: 20130918
  Transmission Date: 20140515
  Serious: Yes (Other)
  Sender: FDA-Public Use
  Company Number: CA-JNJFOC-20120614194

PATIENT
  Sex: Female
  Weight: 128.82 kg

DRUGS (4)
  1. REMICADE [Suspect]
     Indication: CROHN^S DISEASE
     Dosage: THE PATIENT RECEIVED APPROXIMATELY 3+ INFUSIONS.
     Route: 042
     Dates: start: 20120514, end: 201209
  2. HYDROCORTISONE [Concomitant]
     Indication: PREMEDICATION
     Route: 042
  3. ZOFRAN [Concomitant]
     Indication: PREMEDICATION
     Route: 042
  4. IMURAN [Concomitant]
     Indication: CROHN^S DISEASE
     Dosage: END OF 2012
     Route: 048
     Dates: start: 2012

REACTIONS (4)
  - Anaphylactic shock [Recovered/Resolved]
  - Paraesthesia [Recovered/Resolved]
  - Infusion related reaction [Recovered/Resolved]
  - Drug hypersensitivity [Unknown]
